FAERS Safety Report 15120581 (Version 3)
Quarter: 2018Q3

REPORT INFORMATION
  Report Type: Report from Study
  Country: US (occurrence: US)
  Receive Date: 20180709
  Receipt Date: 20180924
  Transmission Date: 20181010
  Serious: Yes (Death)
  Sender: FDA-Public Use
  Company Number: PHEH2018US026389

PATIENT
  Sex: Male

DRUGS (1)
  1. ENTRESTO [Suspect]
     Active Substance: SACUBITRIL\VALSARTAN
     Indication: CARDIAC FAILURE CHRONIC
     Dosage: UNK UNK, BID (SACUBITRIL 24 MG, VALSARTAN UNKNOWN)
     Route: 048

REACTIONS (5)
  - Throat cancer [Fatal]
  - Weight decreased [Unknown]
  - Procedural haemorrhage [Fatal]
  - Ejection fraction decreased [Recovering/Resolving]
  - Procedural complication [Fatal]
